FAERS Safety Report 17952287 (Version 3)
Quarter: 2020Q3

REPORT INFORMATION
  Report Type: Spontaneous
  Country: RU (occurrence: RU)
  Receive Date: 20200626
  Receipt Date: 20200729
  Transmission Date: 20201103
  Serious: Yes (Other)
  Sender: FDA-Public Use
  Company Number: RU-ACTELION-A-CH2020-206235

PATIENT
  Age: 37 Year
  Sex: Female
  Weight: 44 kg

DRUGS (10)
  1. RIOCIGUAT. [Concomitant]
     Active Substance: RIOCIGUAT
  2. DIUVER [Concomitant]
     Active Substance: TORSEMIDE
  3. UPTRAVI [Suspect]
     Active Substance: SELEXIPAG
     Dosage: 400 MCG, BID
     Route: 048
  4. UPTRAVI [Suspect]
     Active Substance: SELEXIPAG
     Indication: PULMONARY ARTERIAL HYPERTENSION
     Dosage: 800 MCG, BID
     Route: 048
  5. UPTRAVI [Suspect]
     Active Substance: SELEXIPAG
     Dosage: 200 MCG, BID
     Route: 048
     Dates: start: 202004
  6. UPTRAVI [Suspect]
     Active Substance: SELEXIPAG
     Dosage: 600 MCG, BID
     Route: 048
  7. OPSUMIT [Concomitant]
     Active Substance: MACITENTAN
  8. ASPARCAM [ASPARTIC ACID;MAGNESIUM ASPARTATE] [Concomitant]
  9. UPTRAVI [Suspect]
     Active Substance: SELEXIPAG
     Dosage: 600 MCG, BID
     Route: 048
     Dates: start: 20200615
  10. XARELTO [Concomitant]
     Active Substance: RIVAROXABAN

REACTIONS (11)
  - Vomiting [Recovered/Resolved]
  - Diarrhoea [Not Recovered/Not Resolved]
  - Feeding disorder [Recovered/Resolved]
  - Retching [Recovered/Resolved]
  - Headache [Not Recovered/Not Resolved]
  - Facial wasting [Recovered/Resolved]
  - Pain in jaw [Recovered/Resolved]
  - Abdominal pain upper [Not Recovered/Not Resolved]
  - Haematemesis [Recovered/Resolved]
  - Nausea [Recovered/Resolved]
  - Weight decreased [Recovered/Resolved]

NARRATIVE: CASE EVENT DATE: 202006
